FAERS Safety Report 9139256 (Version 1)
Quarter: 2013Q1

REPORT INFORMATION
  Report Type: Spontaneous
  Country: US (occurrence: US)
  Receive Date: 20130305
  Receipt Date: 20130305
  Transmission Date: 20140127
  Serious: Yes (Other)
  Sender: FDA-Public Use
  Company Number: US-JNJFOC-20130212135

PATIENT
  Sex: Female
  Weight: 66.68 kg

DRUGS (8)
  1. DURAGESIC [Suspect]
     Indication: BREAKTHROUGH PAIN
     Route: 062
  2. DURAGESIC [Suspect]
     Indication: BREAKTHROUGH PAIN
     Route: 062
  3. DURAGESIC [Suspect]
     Indication: BREAKTHROUGH PAIN
     Dosage: NDC#: 50458-093-05
     Route: 062
  4. DURAGESIC [Suspect]
     Indication: PAIN
     Dosage: NDC#: 50458-093-05
     Route: 062
  5. DURAGESIC [Suspect]
     Indication: PAIN
     Route: 062
  6. DURAGESIC [Suspect]
     Indication: PAIN
     Route: 062
  7. TYLENOL [Suspect]
     Route: 048
  8. TYLENOL [Suspect]
     Indication: PAIN
     Route: 048

REACTIONS (10)
  - Hepatic cirrhosis [Not Recovered/Not Resolved]
  - Product quality issue [Unknown]
  - Wrong technique in drug usage process [Recovered/Resolved]
  - Rash [Recovered/Resolved]
  - Memory impairment [Not Recovered/Not Resolved]
  - Wrong technique in drug usage process [Unknown]
  - Nasopharyngitis [Recovering/Resolving]
  - Malaise [Recovering/Resolving]
  - Drug administered at inappropriate site [Unknown]
  - Rash pruritic [Not Recovered/Not Resolved]
